FAERS Safety Report 11029651 (Version 1)
Quarter: 2015Q2

REPORT INFORMATION
  Report Type: Spontaneous
  Country: US (occurrence: US)
  Receive Date: 20150415
  Receipt Date: 20150415
  Transmission Date: 20150821
  Serious: Yes (Other)
  Sender: FDA-Public Use
  Company Number: US-JNJFOC-20150206698

PATIENT
  Age: 48 Year
  Sex: Male
  Weight: 83.92 kg

DRUGS (2)
  1. MENS ROGAINE UNSCENTED FORMULA [Suspect]
     Active Substance: MINOXIDIL
     Indication: HAIR GROWTH ABNORMAL
     Dosage: SMALL DAB
     Route: 061
     Dates: start: 2009
  2. MENS ROGAINE UNSCENTED FORMULA [Suspect]
     Active Substance: MINOXIDIL
     Route: 061

REACTIONS (10)
  - Skin wrinkling [Not Recovered/Not Resolved]
  - Fatigue [Unknown]
  - Hypertrichosis [Unknown]
  - Inappropriate schedule of drug administration [Unknown]
  - Mass [Not Recovered/Not Resolved]
  - Vision blurred [Unknown]
  - Visual impairment [Unknown]
  - Dry skin [Not Recovered/Not Resolved]
  - Skin lesion [Not Recovered/Not Resolved]
  - Acromegaly [Unknown]

NARRATIVE: CASE EVENT DATE: 2012
